FAERS Safety Report 7583511-X (Version None)
Quarter: 2011Q2

REPORT INFORMATION
  Report Type: 
  Country: None (occurrence: None)
  Receive Date: 20110527
  Receipt Date: 20110127
  Transmission Date: 20111010
  Serious: Yes (Death, Hospitalization, Other)
  Sender: FDA-Public Use
  Company Number: US201002001446

PATIENT
  Age: 75 Year
  Sex: Male

DRUGS (22)
  1. PROSCAR/USA/(FINASTERIDE) [Concomitant]
  2. LASIX/USA/(FUROSEMIDE) [Concomitant]
  3. SPIRIVA [Concomitant]
  4. MORPHINE [Concomitant]
  5. BYETTA [Suspect]
     Dosage: 5 UG, 2/D, SUBCUTANEOUS
     Route: 058
     Dates: start: 20070101, end: 20080201
  6. DETROL LA [Concomitant]
  7. ENALAPRIL MALEATE [Concomitant]
  8. IMDUR [Concomitant]
  9. MULTIVITAMIN [Concomitant]
  10. ALBUTEROL SULFATE W/IPRATROPIUM BROMIDE (IPRATROPIUM BROMIDE, SALBUTAM [Concomitant]
  11. ADVAIR DISKUS (FLUTICASONE PROPIONATE, SALMETEROL XINAFOATE) [Concomitant]
  12. RISPERDAL [Concomitant]
  13. ARICEPT [Concomitant]
  14. THORAZINE [Concomitant]
  15. IMIPENEM (IMIPENEM) [Concomitant]
  16. ATIVAN [Concomitant]
  17. HYTRIN [Concomitant]
  18. LEXAPRO [Concomitant]
  19. QUESTRAM LIGHT (COLESTYRAMINE) [Concomitant]
  20. GLUCAGON [Concomitant]
  21. EXENATIDE PEN (EXENATIIDE PEN) [Concomitant]
  22. ASPIRIN/USA/(ACETYLSALICYLIC ACID) [Concomitant]

REACTIONS (4)
  - RENAL FAILURE ACUTE [None]
  - PANCREATITIS ACUTE [None]
  - PANCREATITIS NECROTISING [None]
  - PANCREATITIS RELAPSING [None]
